FAERS Safety Report 23689777 (Version 5)
Quarter: 2024Q4

REPORT INFORMATION
  Report Type: Spontaneous
  Country: US (occurrence: US)
  Receive Date: 20240331
  Receipt Date: 20241219
  Transmission Date: 20250115
  Serious: Yes (Hospitalization, Other)
  Sender: ABBVIE
  Company Number: US-ABBVIE-5697026

PATIENT
  Age: 57 Year
  Sex: Female
  Weight: 69 kg

DRUGS (20)
  1. RINVOQ [Suspect]
     Active Substance: UPADACITINIB
     Indication: Product used for unknown indication
     Route: 048
     Dates: start: 2023, end: 2023
  2. ULTRAM [Concomitant]
     Active Substance: TRAMADOL HYDROCHLORIDE
     Indication: Product used for unknown indication
     Route: 048
     Dates: start: 20220504
  3. ULTRAM [Concomitant]
     Active Substance: TRAMADOL HYDROCHLORIDE
     Indication: Product used for unknown indication
     Dosage: TAKE ONE TABLET BY MOUTH EVERY 6 HOURS AS NEEDED FOR UP TO 14 DAYS
     Route: 048
     Dates: start: 202001
  4. ATARAX [Concomitant]
     Active Substance: HYDROXYZINE HYDROCHLORIDE
     Indication: Pruritus
     Dosage: TIME INTERVAL: 0.33333333 DAYS: AS NEEDED?1 TABLET
     Route: 048
     Dates: start: 20240827
  5. ZYRTEC [Concomitant]
     Active Substance: CETIRIZINE HYDROCHLORIDE
     Indication: Product used for unknown indication
     Dates: start: 2020
  6. PANTOPRAZOLE [Concomitant]
     Active Substance: PANTOPRAZOLE
     Indication: Product used for unknown indication
     Dosage: DAILY?1 TABLET
     Route: 048
     Dates: start: 20191205
  7. PANTOPRAZOLE [Concomitant]
     Active Substance: PANTOPRAZOLE
     Indication: Product used for unknown indication
     Dosage: DAILY?1 TABLET
     Route: 048
     Dates: start: 20231122
  8. LOPRESSOR [Concomitant]
     Active Substance: METOPROLOL TARTRATE
     Indication: Product used for unknown indication
     Dosage: STRENGTH: 25 MG?TAKE 1 TABLET
     Route: 048
     Dates: start: 20240910
  9. FAMOTIDINE [Concomitant]
     Active Substance: FAMOTIDINE
     Indication: Product used for unknown indication
     Dosage: TAKE 1 TABLET
     Dates: start: 20231023
  10. FLEXERIL [Concomitant]
     Active Substance: CYCLOBENZAPRINE HYDROCHLORIDE
     Indication: Muscle spasms
     Dosage: TIME INTERVAL: 0.33333333 DAYS: AS NEEDED
     Dates: start: 20240312
  11. FLUCONAZOLE [Concomitant]
     Active Substance: FLUCONAZOLE
     Indication: Product used for unknown indication
     Dates: start: 20230908
  12. ESTRACE [Concomitant]
     Active Substance: ESTRADIOL
     Indication: Product used for unknown indication
     Dosage: 0.01% (0.1 MG/GRAM)?PLACE VAGINALLY DAILY
     Route: 061
     Dates: start: 20240405
  13. CLARITIN [Concomitant]
     Active Substance: LORATADINE
     Indication: Product used for unknown indication
     Dosage: DAILY BY MOUTH
     Route: 048
  14. VITAMIN D3 [Concomitant]
     Active Substance: CHOLECALCIFEROL
     Indication: Product used for unknown indication
     Dosage: 2000 UNITS?INSTRUCTIONS: TAKE 4,000 UNITS BY MOUTH DAILY.
     Route: 048
  15. RESTASIS [Concomitant]
     Active Substance: CYCLOSPORINE
     Indication: Product used for unknown indication
     Dosage: 0.05% OPHTHALMIC EMULSION ?INSTRUCTIONS: PLACE 1 DROP INTO THE RIGHT EYE EVERY 12 (TWELVE) HOURS.
     Dates: start: 20240115
  16. ZOFRAN [Concomitant]
     Active Substance: ONDANSETRON HYDROCHLORIDE
     Indication: Nausea
     Dosage: TIME INTERVAL: 0.33333333 DAYS: DISSOLVE ONE TABLET BY MOUTH AS NEEDED?ODT
     Dates: start: 20210602
  17. ORENCIA [Concomitant]
     Active Substance: ABATACEPT
     Indication: Product used for unknown indication
     Dosage: UNDER THE SKIN?125 MG/ML AUTO-INJECTOR
     Dates: start: 20231229
  18. CRESTOR [Concomitant]
     Active Substance: ROSUVASTATIN CALCIUM
     Indication: Product used for unknown indication
     Dosage: 1 TABLET
     Route: 048
     Dates: start: 20240422
  19. CYCLOBENZAPRINE [Concomitant]
     Active Substance: CYCLOBENZAPRINE
     Indication: Muscle spasms
     Dosage: TIME INTERVAL: 0.33333333 DAYS: 10 MG ?AS NEEDED
     Route: 048
  20. FOLIC ACID [Concomitant]
     Active Substance: FOLIC ACID
     Indication: Product used for unknown indication
     Dosage: TAKE 1 TABLET BY MOUTH DAILY
     Route: 048

REACTIONS (79)
  - Haemolysis [Unknown]
  - Blood loss anaemia [Recovered/Resolved]
  - Renal impairment [Recovered/Resolved]
  - Neuropathy peripheral [Unknown]
  - Gait inability [Unknown]
  - Normochromic anaemia [Recovered/Resolved]
  - Rheumatoid arthritis [Not Recovered/Not Resolved]
  - Chronic kidney disease [Not Recovered/Not Resolved]
  - Anaemia macrocytic [Recovered/Resolved]
  - Helicobacter infection [Not Recovered/Not Resolved]
  - Pain [Unknown]
  - Haemoglobin decreased [Unknown]
  - Asthenia [Unknown]
  - Gastrointestinal haemorrhage [Recovered/Resolved]
  - Oesophageal spasm [Unknown]
  - Urinary tract infection [Unknown]
  - Thyroiditis [Unknown]
  - Migraine [Unknown]
  - Pruritus [Unknown]
  - Aortic arteriosclerosis [Unknown]
  - Atrophic vulvovaginitis [Unknown]
  - Pruritus [Unknown]
  - Supraventricular tachycardia [Unknown]
  - Muscle injury [Unknown]
  - Hyperparathyroidism secondary [Unknown]
  - Rheumatoid arthritis [Unknown]
  - Myopathy [Unknown]
  - Urinary incontinence [Unknown]
  - Knee arthroplasty [Unknown]
  - Stress urinary incontinence [Unknown]
  - Asthenia [Unknown]
  - Haemoglobin abnormal [Unknown]
  - Fatigue [Unknown]
  - Dizziness [Unknown]
  - Headache [Unknown]
  - Nausea [Unknown]
  - Fatigue [Unknown]
  - Muscle spasms [Unknown]
  - Cystitis [Unknown]
  - Chromaturia [Unknown]
  - Thyroid disorder [Unknown]
  - Palpitations [Unknown]
  - Dry skin [Unknown]
  - Skin warm [Unknown]
  - Bladder hypertrophy [Unknown]
  - Neck pain [Unknown]
  - Back pain [Unknown]
  - Intervertebral disc disorder [Unknown]
  - Anaemia [Unknown]
  - Pancreatic atrophy [Unknown]
  - Hepatic cyst [Unknown]
  - Vulvovaginal candidiasis [Recovered/Resolved]
  - Thrombotic thrombocytopenic purpura [Unknown]
  - Abdominal pain [Unknown]
  - Syncope [Unknown]
  - Dysstasia [Unknown]
  - Gait inability [Unknown]
  - Costovertebral angle tenderness [Unknown]
  - Haematuria [Unknown]
  - Neuropathy peripheral [Recovering/Resolving]
  - Muscle spasms [Recovering/Resolving]
  - Vomiting [Unknown]
  - Haematemesis [Unknown]
  - Faeces discoloured [Unknown]
  - Dysuria [Unknown]
  - Cellulitis [Not Recovered/Not Resolved]
  - Spinal fusion surgery [Unknown]
  - Dyspnoea [Unknown]
  - Malaise [Unknown]
  - Fatigue [Unknown]
  - Dyspepsia [Unknown]
  - Erythema [Unknown]
  - Swelling face [Unknown]
  - Eye irritation [Unknown]
  - Skin exfoliation [Not Recovered/Not Resolved]
  - Abdominal distension [Unknown]
  - Constipation [Unknown]
  - Skin wound [Unknown]
  - Hysterectomy [Unknown]

NARRATIVE: CASE EVENT DATE: 20230101
